FAERS Safety Report 7312517-0 (Version None)
Quarter: 2011Q1

REPORT INFORMATION
  Report Type: 
  Country: None (occurrence: None)
  Receive Date: 20110119
  Receipt Date: 20100528
  Transmission Date: 20110831
  Serious: Yes (Hospitalization, Disabling, Other)
  Sender: FDA-Public Use
  Company Number: A-US2010-32873

PATIENT
  Age: 67 Year
  Sex: Female

DRUGS (2)
  1. TRACLEER [Suspect]
     Indication: PULMONARY ARTERIAL HYPERTENSION
     Dosage: ORAL
     Route: 048
     Dates: start: 20091014, end: 20091221
  2. COUMADIN [Concomitant]

REACTIONS (3)
  - RIGHT VENTRICULAR FAILURE [None]
  - LIVER INJURY [None]
  - HEPATIC CONGESTION [None]
